FAERS Safety Report 14913331 (Version 1)
Quarter: 2018Q2

REPORT INFORMATION
  Report Type: Spontaneous
  Country: GB (occurrence: GB)
  Receive Date: 20180518
  Receipt Date: 20180518
  Transmission Date: 20180711
  Serious: Yes (Life-Threatening, Other)
  Sender: FDA-Public Use
  Company Number: GB-HQ SPECIALTY-GB-2018INT000078

PATIENT
  Age: 55 Year
  Sex: Male
  Weight: 350 kg

DRUGS (16)
  1. PROPOFOL. [Concomitant]
     Active Substance: PROPOFOL
     Indication: PRODUCT USED FOR UNKNOWN INDICATION
     Dosage: 1 % (12 ML,1 H)
     Route: 065
     Dates: start: 20180408
  2. POTASSIUM [Concomitant]
     Active Substance: POTASSIUM
     Indication: PRODUCT USED FOR UNKNOWN INDICATION
     Dosage: 1 MMOL/1ML AT A DAILY DOSE OF 0-15 ML/HR
     Route: 065
     Dates: start: 20180408
  3. FUROSEMIDE. [Concomitant]
     Active Substance: FUROSEMIDE
     Indication: PRODUCT USED FOR UNKNOWN INDICATION
     Dosage: 80 MG (40 MG,2 IN 1 D)
     Route: 065
     Dates: start: 20180413
  4. AMITRIPTYLINE [Concomitant]
     Active Substance: AMITRIPTYLINE
     Indication: PRODUCT USED FOR UNKNOWN INDICATION
     Dosage: 10 MG,1 D
     Route: 065
     Dates: start: 20180408
  5. HYDROCORTISONE. [Concomitant]
     Active Substance: HYDROCORTISONE
     Indication: PRODUCT USED FOR UNKNOWN INDICATION
     Dosage: 400 MG (100 MG,4 IN 1 D)
     Route: 065
     Dates: start: 20180421
  6. INSULIN HUMAN [Concomitant]
     Active Substance: INSULIN HUMAN
     Indication: PRODUCT USED FOR UNKNOWN INDICATION
     Dosage: 0-8 ML/HR
     Route: 065
     Dates: start: 20180408
  7. TINZAPARIN [Concomitant]
     Active Substance: TINZAPARIN
     Indication: PRODUCT USED FOR UNKNOWN INDICATION
     Dosage: 4500 UNITS X 2
     Route: 058
     Dates: start: 20180408
  8. CITALOPRAM [Concomitant]
     Active Substance: CITALOPRAM HYDROBROMIDE
     Indication: PRODUCT USED FOR UNKNOWN INDICATION
     Dosage: 20 MG,1 D
     Route: 065
     Dates: start: 20180408
  9. ALFENTANIL. [Concomitant]
     Active Substance: ALFENTANIL
     Indication: PRODUCT USED FOR UNKNOWN INDICATION
     Dosage: 0.5 MG/ML (3 ML,1 H)
     Route: 065
     Dates: start: 20180408, end: 20180427
  10. LORATADINE. [Concomitant]
     Active Substance: LORATADINE
     Indication: PRODUCT USED FOR UNKNOWN INDICATION
     Dosage: 10 MG,1 D
     Route: 065
     Dates: start: 20180408
  11. ACETAZOLAMIDE. [Concomitant]
     Active Substance: ACETAZOLAMIDE
     Indication: PRODUCT USED FOR UNKNOWN INDICATION
     Dosage: 500 MG (250 MG,2 IN 1 D)
     Route: 065
     Dates: start: 20180423
  12. REMIFENTANIL [Concomitant]
     Active Substance: REMIFENTANIL
     Indication: PRODUCT USED FOR UNKNOWN INDICATION
     Dosage: UNK
     Route: 065
  13. MEROPENEM. [Concomitant]
     Active Substance: MEROPENEM
     Indication: PRODUCT USED FOR UNKNOWN INDICATION
     Dosage: 2 GM X 3
     Route: 042
     Dates: start: 20180408
  14. DEXMEDETOMIDINE HYDROCHLORIDE. [Suspect]
     Active Substance: DEXMEDETOMIDINE HYDROCHLORIDE
     Indication: AGITATION
     Dosage: 800 MCG/100 (21 ML,1 H)
     Route: 042
     Dates: start: 20180422, end: 20180429
  15. OMEPRAZOLE. [Concomitant]
     Active Substance: OMEPRAZOLE
     Indication: PRODUCT USED FOR UNKNOWN INDICATION
     Dosage: 20 MG,1 D
     Route: 065
     Dates: start: 20180408
  16. PROPOFOL. [Concomitant]
     Active Substance: PROPOFOL
     Dosage: 5 ML,1 H
     Route: 065
     Dates: start: 20180427

REACTIONS (1)
  - Cardiac arrest [Recovered/Resolved]
